FAERS Safety Report 25275399 (Version 1)
Quarter: 2025Q2

REPORT INFORMATION
  Report Type: Spontaneous
  Country: US (occurrence: US)
  Receive Date: 20250506
  Receipt Date: 20250506
  Transmission Date: 20250716
  Serious: Yes (Other)
  Sender: INTRABIO
  Company Number: US-IBO-202500087

PATIENT
  Age: 11 Year
  Sex: Male
  Weight: 28 kg

DRUGS (2)
  1. BACLOFEN [Concomitant]
     Active Substance: BACLOFEN
     Indication: Product used for unknown indication
     Route: 065
  2. AQNEURSA [Suspect]
     Active Substance: ACETYLLEUCINE, L-
     Indication: Product used for unknown indication
     Route: 065
     Dates: start: 20250409, end: 20250424

REACTIONS (2)
  - Petit mal epilepsy [Unknown]
  - Product dose omission issue [Unknown]

NARRATIVE: CASE EVENT DATE: 20250424
